FAERS Safety Report 7178986-4 (Version None)
Quarter: 2010Q4

REPORT INFORMATION
  Report Type: 
  Country: None (occurrence: None)
  Receive Date: 20101221
  Receipt Date: 20101208
  Transmission Date: 20110411
  Serious: Yes (Hospitalization)
  Sender: FDA-Public Use
  Company Number: PHHY2010VE83578

PATIENT
  Sex: Female

DRUGS (2)
  1. ACLASTA [Suspect]
     Indication: OSTEOPOROSIS
     Dosage: 5 MG
     Route: 042
     Dates: start: 20091127
  2. ACLASTA [Suspect]
     Dosage: 5 MG
     Route: 042
     Dates: start: 20101110

REACTIONS (1)
  - ARTHROSCOPY [None]
